FAERS Safety Report 19940793 (Version 1)
Quarter: 2021Q4

REPORT INFORMATION
  Report Type: Spontaneous
  Country: US (occurrence: US)
  Receive Date: 20211011
  Receipt Date: 20211011
  Transmission Date: 20220303
  Serious: No
  Sender: FDA-Public Use
  Company Number: US-BAYER-2021A223338

PATIENT

DRUGS (3)
  1. CLARITIN [Suspect]
     Active Substance: LORATADINE
     Indication: Ear pruritus
  2. CLARITIN [Suspect]
     Active Substance: LORATADINE
     Indication: Pruritus
  3. CLARITIN [Suspect]
     Active Substance: LORATADINE
     Indication: Oral mucosal blistering

REACTIONS (1)
  - Drug effective for unapproved indication [Unknown]
